FAERS Safety Report 20481337 (Version 1)
Quarter: 2022Q1

REPORT INFORMATION
  Report Type: Spontaneous
  Country: US (occurrence: US)
  Receive Date: 20220216
  Receipt Date: 20220216
  Transmission Date: 20220423
  Serious: Yes (Other)
  Sender: FDA-Public Use
  Company Number: US-MYLANLABS-2022M1012826

PATIENT
  Age: 72 Year
  Sex: Male

DRUGS (11)
  1. DOXYCYCLINE [Suspect]
     Active Substance: DOXYCYCLINE
     Indication: Lymphoid tissue hyperplasia
     Dosage: UNK
     Route: 065
  2. DOXYCYCLINE [Suspect]
     Active Substance: DOXYCYCLINE
     Indication: Skin hyperplasia
  3. HYDROXYCHLOROQUINE [Suspect]
     Active Substance: HYDROXYCHLOROQUINE
     Indication: Lymphoid tissue hyperplasia
     Dosage: UNK
     Route: 065
  4. HYDROXYCHLOROQUINE [Suspect]
     Active Substance: HYDROXYCHLOROQUINE
     Indication: Skin hyperplasia
  5. PREDNISONE [Suspect]
     Active Substance: PREDNISONE
     Indication: Lymphoid tissue hyperplasia
     Dosage: UNK,TWO COURSES
     Route: 048
  6. PREDNISONE [Suspect]
     Active Substance: PREDNISONE
     Indication: Lymphoid tissue hyperplasia
     Dosage: UNK
     Route: 048
  7. PREDNISONE [Suspect]
     Active Substance: PREDNISONE
     Indication: Skin hyperplasia
  8. METHOTREXATE [Suspect]
     Active Substance: METHOTREXATE
     Indication: Lymphoid tissue hyperplasia
     Dosage: UNK
     Route: 048
  9. METHOTREXATE [Suspect]
     Active Substance: METHOTREXATE
     Indication: Skin hyperplasia
  10. NIACINAMIDE [Suspect]
     Active Substance: NIACINAMIDE
     Indication: Lymphoid tissue hyperplasia
     Dosage: UNK
     Route: 065
  11. NIACINAMIDE [Suspect]
     Active Substance: NIACINAMIDE
     Indication: Skin hyperplasia

REACTIONS (2)
  - Drug ineffective [Unknown]
  - Off label use [Unknown]
